FAERS Safety Report 4893526-8 (Version None)
Quarter: 2006Q1

REPORT INFORMATION
  Report Type: 
  Country: None (occurrence: None)
  Receive Date: 20060127
  Receipt Date: 20060116
  Transmission Date: 20060701
  Serious: Yes (Other)
  Sender: FDA-Public Use
  Company Number: US-JNJFOC-20060103621

PATIENT
  Sex: Female
  Weight: 47.63 kg

DRUGS (2)
  1. ULTRAM [Suspect]
     Dosage: NOW TAKES UP TO SIX TABLETS THREE TIMES PER DAY
     Route: 048
  2. ULTRAM [Suspect]
     Indication: FRACTURED COCCYX
     Dosage: ONE DOSE = ONE TO TWO TABLETS EVERY FOUR HOURS
     Route: 048

REACTIONS (3)
  - DRUG DEPENDENCE [None]
  - DRUG WITHDRAWAL CONVULSIONS [None]
  - DRUG WITHDRAWAL SYNDROME [None]
